FAERS Safety Report 5680164-2 (Version None)
Quarter: 2008Q1

REPORT INFORMATION
  Report Type: 
  Country: None (occurrence: None)
  Receive Date: 20080326
  Receipt Date: 20080313
  Transmission Date: 20080703
  Serious: Yes (Other)
  Sender: FDA-Public Use
  Company Number: BR-ELI_LILLY_AND_COMPANY-BR200803003193

PATIENT
  Sex: Female

DRUGS (3)
  1. FORTEO [Suspect]
     Indication: OSTEOPOROSIS
     Dosage: 20 UG, DAILY (1/D)
     Route: 058
     Dates: start: 20070201
  2. ALENDRONATE SODIUM [Concomitant]
     Dosage: 70 MG, DAILY (1/D)
     Route: 065
  3. PHARMATON [Concomitant]
     Dosage: UNK, DAILY (1/D)
     Route: 065

REACTIONS (2)
  - BLOOD CALCIUM INCREASED [None]
  - CONVULSION [None]
